FAERS Safety Report 12427727 (Version 1)
Quarter: 2016Q2

REPORT INFORMATION
  Report Type: Spontaneous
  Country: US (occurrence: None)
  Receive Date: 20160531
  Receipt Date: 20160531
  Transmission Date: 20160815
  Serious: No
  Sender: FDA-Public Use
  Company Number: None

PATIENT
  Age: 52 Year
  Sex: Female

DRUGS (1)
  1. AVONEX [Suspect]
     Active Substance: INTERFERON BETA-1A
     Indication: MULTIPLE SCLEROSIS
     Route: 030
     Dates: start: 20160506

REACTIONS (11)
  - Nausea [None]
  - Mood swings [None]
  - Bone pain [None]
  - Psychotic disorder [None]
  - Vomiting [None]
  - Asthenia [None]
  - Stomatitis [None]
  - Influenza like illness [None]
  - Myalgia [None]
  - Abdominal discomfort [None]
  - Fatigue [None]
